FAERS Safety Report 8763773 (Version 1)
Quarter: 2012Q4

REPORT INFORMATION
  Report Type: 
  Country: JP (occurrence: JP)
  Receive Date: 20120831
  Receipt Date: 20120831
  Transmission Date: 20130627
  Serious: Yes (Other)
  Sender: FDA-Public Use
  Company Number: PHHY2012JP073612

PATIENT
  Sex: Male

DRUGS (1)
  1. CICLOSPORIN [Suspect]
     Indication: STEM CELL TRANSPLANT

REACTIONS (9)
  - Oesophageal stenosis [Unknown]
  - Histiocytosis haematophagic [Unknown]
  - Pneumonia [Unknown]
  - Graft versus host disease [Unknown]
  - Pancytopenia [Unknown]
  - Nutritional condition abnormal [Unknown]
  - Dry eye [Unknown]
  - Mouth ulceration [Unknown]
  - Chronic graft versus host disease [None]
